FAERS Safety Report 9504729 (Version 3)
Quarter: 2013Q4

REPORT INFORMATION
  Report Type: Spontaneous
  Country: US (occurrence: US)
  Receive Date: 20130906
  Receipt Date: 20131223
  Transmission Date: 20140711
  Serious: Yes (Other)
  Sender: FDA-Public Use
  Company Number: US-ELI_LILLY_AND_COMPANY-US201308007328

PATIENT
  Sex: Female
  Weight: 81.3 kg

DRUGS (1)
  1. INSULIN HUMAN [Suspect]
     Indication: PRODUCT USED FOR UNKNOWN INDICATION
     Dosage: UNK
     Route: 065
     Dates: start: 20130816

REACTIONS (5)
  - Diabetic ketoacidosis [Recovered/Resolved]
  - Sepsis [Unknown]
  - Neoplasm malignant [Unknown]
  - Blood glucose abnormal [Recovered/Resolved]
  - Stress [Unknown]
